FAERS Safety Report 7266561-2 (Version None)
Quarter: 2011Q1

REPORT INFORMATION
  Report Type: 
  Country: None (occurrence: None)
  Receive Date: 20110131
  Receipt Date: 20110124
  Transmission Date: 20110831
  Serious: Yes (Hospitalization)
  Sender: FDA-Public Use
  Company Number: US-US-EMD SERONO, INC.-7033013

PATIENT
  Sex: Female

DRUGS (1)
  1. REBIF [Suspect]
     Indication: PRODUCT USED FOR UNKNOWN INDICATION
     Route: 058
     Dates: start: 20090105, end: 20101201

REACTIONS (7)
  - NAUSEA [None]
  - MIGRAINE [None]
  - DIZZINESS [None]
  - PYREXIA [None]
  - CHILLS [None]
  - PALPITATIONS [None]
  - VOMITING [None]
